FAERS Safety Report 11080660 (Version 1)
Quarter: 2015Q2

REPORT INFORMATION
  Report Type: Spontaneous
  Country: US (occurrence: US)
  Receive Date: 20150501
  Receipt Date: 20150501
  Transmission Date: 20150821
  Serious: Yes (Other)
  Sender: FDA-Public Use
  Company Number: US-ELI_LILLY_AND_COMPANY-US201504008098

PATIENT
  Sex: Female

DRUGS (2)
  1. CYMBALTA [Suspect]
     Active Substance: DULOXETINE HYDROCHLORIDE
     Indication: ARTHRALGIA
  2. CYMBALTA [Suspect]
     Active Substance: DULOXETINE HYDROCHLORIDE
     Indication: PAIN MANAGEMENT
     Dosage: UNK
     Route: 065
     Dates: start: 200812, end: 201402

REACTIONS (7)
  - Paraesthesia [Unknown]
  - Headache [Unknown]
  - Mood swings [Unknown]
  - Nightmare [Unknown]
  - Vision blurred [Unknown]
  - Dizziness [Unknown]
  - Drug withdrawal syndrome [Unknown]
